FAERS Safety Report 5157833-6 (Version None)
Quarter: 2006Q4

REPORT INFORMATION
  Report Type: 
  Country: None (occurrence: None)
  Receive Date: 20061120
  Receipt Date: 20061120
  Transmission Date: 20070319
  Serious: Yes (Hospitalization)
  Sender: FDA-Public Use
  Company Number: None

PATIENT
  Age: 5 Year
  Sex: Male
  Weight: 21 kg

DRUGS (3)
  1. ONCOSPAR-PEG-ASPARAGINASE- 750 IU PER ML ENZON [Suspect]
     Indication: ACUTE LYMPHOCYTIC LEUKAEMIA
     Dosage: 2010 UNITS DAY15 AND 43 IM
     Route: 030
     Dates: start: 20061116, end: 20061116
  2. VINCRISTINE [Concomitant]
  3. METHOTREXATE [Concomitant]

REACTIONS (4)
  - BODY TEMPERATURE INCREASED [None]
  - GINGIVITIS [None]
  - HYPERSENSITIVITY [None]
  - RASH MACULO-PAPULAR [None]
